FAERS Safety Report 8572360-1 (Version None)
Quarter: 2012Q2

REPORT INFORMATION
  Report Type: 
  Country: None (occurrence: None)
  Receive Date: 20120419
  Receipt Date: 20120419
  Transmission Date: 20120825
  Serious: Yes (Hospitalization)
  Sender: FDA-Public Use
  Company Number: ALL1-2011-03954

PATIENT
  Age: 14 Year
  Sex: Male

DRUGS (1)
  1. MESALAMINE [Suspect]
     Indication: CROHN'S DISEASE
     Dosage: 2.4 G. 1X/DAY:QD, ORAL
     Route: 048
     Dates: start: 20110617, end: 20111013

REACTIONS (3)
  - OFF LABEL USE [None]
  - ABDOMINAL PAIN [None]
  - VOMITING [None]
